FAERS Safety Report 6407886-X (Version None)
Quarter: 2009Q4

REPORT INFORMATION
  Report Type: 
  Country: None (occurrence: None)
  Receive Date: 20091015
  Receipt Date: 20091005
  Transmission Date: 20100525
  Serious: Yes (Other)
  Sender: FDA-Public Use
  Company Number: 09US004190

PATIENT
  Age: 23 Year
  Sex: Female
  Weight: 63.5 kg

DRUGS (5)
  1. IBUPROFEN [Suspect]
     Indication: DYSMENORRHOEA
     Dosage: 200-400 MG, PRN, ORAL
     Route: 048
  2. IBUPROFEN [Suspect]
     Indication: PAIN
     Dosage: 200-400 MG, PRN, ORAL
     Route: 048
  3. MOTRIN [Suspect]
     Indication: DYSMENORRHOEA
     Dosage: 200-400 MG, PRN, ORAL
     Route: 048
  4. MOTRIN [Suspect]
     Indication: PAIN
     Dosage: 200-400 MG, PRN, ORAL
     Route: 048
  5. CONTRACEPTIVES NOS [Suspect]
     Indication: CONTRACEPTION
     Dosage: ORAL
     Route: 048

REACTIONS (1)
  - CEREBROVASCULAR ACCIDENT [None]
